FAERS Safety Report 17262061 (Version 3)
Quarter: 2022Q1

REPORT INFORMATION
  Report Type: Spontaneous
  Country: US (occurrence: US)
  Receive Date: 20200113
  Receipt Date: 20220221
  Transmission Date: 20220423
  Serious: Yes (Other)
  Sender: FDA-Public Use
  Company Number: US-GILEAD-2020-0446121

PATIENT
  Age: 51 Year
  Sex: Male

DRUGS (82)
  1. ATRIPLA [Suspect]
     Active Substance: EFAVIRENZ\EMTRICITABINE\TENOFOVIR DISOPROXIL FUMARATE
     Indication: HIV infection
     Dosage: 1 DOSAGE FORM, QD
     Route: 048
     Dates: start: 20070427, end: 20170424
  2. TRUVADA [Suspect]
     Active Substance: EMTRICITABINE\TENOFOVIR DISOPROXIL FUMARATE
     Indication: HIV infection
     Dosage: 1 DOSAGE FORM, QD
     Route: 048
     Dates: start: 20080425, end: 200804
  3. GENVOYA [Concomitant]
     Active Substance: COBICISTAT\ELVITEGRAVIR\EMTRICITABINE\TENOFOVIR ALAFENAMIDE FUMARATE
  4. CHLORHEXIDINE [Concomitant]
     Active Substance: CHLORHEXIDINE
  5. GABAPENTIN [Concomitant]
     Active Substance: GABAPENTIN
  6. LORAZEPAM [Concomitant]
     Active Substance: LORAZEPAM
  7. LISINOPRIL [Concomitant]
     Active Substance: LISINOPRIL
  8. METFORMIN [Concomitant]
     Active Substance: METFORMIN HYDROCHLORIDE
  9. ZOLPIDEM [Concomitant]
     Active Substance: ZOLPIDEM TARTRATE
  10. CYANOCOBALAMIN [Concomitant]
     Active Substance: CYANOCOBALAMIN
  11. ACETAMINOPHEN\HYDROCODONE [Concomitant]
     Active Substance: ACETAMINOPHEN\HYDROCODONE
  12. METHADONE [Concomitant]
     Active Substance: METHADONE HYDROCHLORIDE
  13. AMLODIPINE [Concomitant]
     Active Substance: AMLODIPINE BESYLATE
  14. FENOFIBRATE [Concomitant]
     Active Substance: FENOFIBRATE
  15. FLUTICASONE [Concomitant]
     Active Substance: FLUTICASONE
  16. NIACIN [Concomitant]
     Active Substance: NIACIN
  17. OMEPRAZOLE [Concomitant]
     Active Substance: OMEPRAZOLE
  18. PAROXETINE [Concomitant]
     Active Substance: PAROXETINE
  19. PROAIR HFA [Concomitant]
     Active Substance: ALBUTEROL SULFATE
  20. NYSTATIN [Concomitant]
     Active Substance: NYSTATIN
  21. AMOXICILLIN [Concomitant]
     Active Substance: AMOXICILLIN
  22. OMEGA 3 [FISH OIL;VITAMIN E NOS] [Concomitant]
  23. SUSTIVA [Concomitant]
     Active Substance: EFAVIRENZ
  24. ATROPINE\DIPHENOXYLATE [Concomitant]
     Active Substance: ATROPINE\DIPHENOXYLATE
  25. PREDNISONE [Concomitant]
     Active Substance: PREDNISONE
  26. EPINEPHRINE [Concomitant]
     Active Substance: EPINEPHRINE
  27. DOXYCYCLINE [Concomitant]
     Active Substance: DOXYCYCLINE
  28. AMOXICILLIN\CLAVULANATE POTASSIUM [Concomitant]
     Active Substance: AMOXICILLIN\CLAVULANATE POTASSIUM
  29. GLIPIZIDE [Concomitant]
     Active Substance: GLIPIZIDE
  30. ALENDRONATE [Concomitant]
     Active Substance: ALENDRONATE SODIUM
  31. FUROSEMIDE [Concomitant]
     Active Substance: FUROSEMIDE
  32. ODEFSEY [Concomitant]
     Active Substance: EMTRICITABINE\RILPIVIRINE HYDROCHLORIDE\TENOFOVIR ALAFENAMIDE FUMARATE
  33. CEFPODOXIME [Concomitant]
     Active Substance: CEFPODOXIME
  34. METRONIDAZOLE [Concomitant]
     Active Substance: METRONIDAZOLE
  35. ONDANSETRON [Concomitant]
     Active Substance: ONDANSETRON
  36. EPIPEN [Concomitant]
     Active Substance: EPINEPHRINE
  37. RANITIDINE [Concomitant]
     Active Substance: RANITIDINE
  38. MUPIROCIN [Concomitant]
     Active Substance: MUPIROCIN
  39. SULFISOMIDINE [Concomitant]
     Active Substance: SULFISOMIDINE
  40. CRESTOR [Concomitant]
     Active Substance: ROSUVASTATIN CALCIUM
  41. PROVENTIL HFA [Concomitant]
     Active Substance: ALBUTEROL SULFATE
  42. AMOXICILLIN\CLAVULANIC ACID [Concomitant]
     Active Substance: AMOXICILLIN\CLAVULANIC ACID
  43. BACTROBAN [Concomitant]
     Active Substance: MUPIROCIN\MUPIROCIN CALCIUM
  44. DIPHENHYDRAMINE [Concomitant]
     Active Substance: DIPHENHYDRAMINE
  45. EMTRICITABINE [Concomitant]
     Active Substance: EMTRICITABINE
  46. PSEUDOEPHEDRINE [Concomitant]
     Active Substance: PSEUDOEPHEDRINE
  47. ALBUTEROL SULFATE [Concomitant]
     Active Substance: ALBUTEROL SULFATE
  48. VANCOMYCIN [Concomitant]
     Active Substance: VANCOMYCIN
  49. ZOSYN [Concomitant]
     Active Substance: PIPERACILLIN SODIUM\TAZOBACTAM SODIUM
  50. AZITHROMYCIN [Concomitant]
     Active Substance: AZITHROMYCIN
  51. LOPERAMIDE HYDROCHLORIDE [Concomitant]
     Active Substance: LOPERAMIDE HYDROCHLORIDE
  52. NORCO [Concomitant]
     Active Substance: ACETAMINOPHEN\HYDROCODONE BITARTRATE
  53. AMBIEN [Concomitant]
     Active Substance: ZOLPIDEM TARTRATE
  54. BACTRIM DS [Concomitant]
     Active Substance: SULFAMETHOXAZOLE\TRIMETHOPRIM
  55. CALCIUM LACTATE\CALCIUM PHOSPHATE\CHOLECALCIFEROL [Concomitant]
     Active Substance: CALCIUM LACTATE\CALCIUM PHOSPHATE\CHOLECALCIFEROL
  56. CEFDINIR [Concomitant]
     Active Substance: CEFDINIR
  57. LINAGLIPTIN [Concomitant]
     Active Substance: LINAGLIPTIN
  58. ACETAMINOPHEN;PHENYLEPHRINE HYDROCHLORIDE [Concomitant]
  59. SIMETHICONE (DIMETHICONE) [Concomitant]
     Active Substance: DIMETHICONE
  60. ATORVASTATIN [Concomitant]
     Active Substance: ATORVASTATIN
  61. DEXTROSE [Concomitant]
     Active Substance: DEXTROSE
  62. LACTATED RINGERS SOLUTION [Concomitant]
     Active Substance: CALCIUM CHLORIDE\POTASSIUM CHLORIDE\SODIUM CHLORIDE\SODIUM LACTATE
  63. OXYGEN [Concomitant]
     Active Substance: OXYGEN
  64. ADENOSINE [Concomitant]
     Active Substance: ADENOSINE
  65. PIPERACILLIN SODIUM\TAZOBACTAM SODIUM [Concomitant]
     Active Substance: PIPERACILLIN SODIUM\TAZOBACTAM SODIUM
  66. ENOXAPARIN [Concomitant]
     Active Substance: ENOXAPARIN
  67. ADCO-DEXTROSE [Concomitant]
  68. SODIUM CHLORIDE [Concomitant]
     Active Substance: SODIUM CHLORIDE
  69. ACYCLOVIR ABBOTT VIAL [Concomitant]
  70. CIPROFLOXACIN [Concomitant]
     Active Substance: CIPROFLOXACIN
  71. CLOBETASOL [Concomitant]
     Active Substance: CLOBETASOL
  72. CEPHALEXIN [Concomitant]
     Active Substance: CEPHALEXIN
  73. HYDROQUINONE [Concomitant]
     Active Substance: HYDROQUINONE
  74. PHENAZOPYRIDINE [Concomitant]
     Active Substance: PHENAZOPYRIDINE
  75. CHOLECALCIFEROL [Concomitant]
     Active Substance: CHOLECALCIFEROL
  76. PEN G POTASSIUM [Concomitant]
  77. FLUOCINOLONE ACETONIDE [Concomitant]
     Active Substance: FLUOCINOLONE ACETONIDE
  78. PRAMOXINE [Concomitant]
     Active Substance: PRAMOXINE
  79. DOCUSATE SODIUM [Concomitant]
     Active Substance: DOCUSATE SODIUM
  80. CREATINE [Concomitant]
     Active Substance: CREATINE
  81. OFLOXACIN [Concomitant]
     Active Substance: OFLOXACIN
  82. FLEET PHOSPHATE ENEMA [Concomitant]

REACTIONS (7)
  - Chronic kidney disease [Not Recovered/Not Resolved]
  - Emotional distress [Unknown]
  - Anhedonia [Unknown]
  - Economic problem [Unknown]
  - Anxiety [Unknown]
  - Pain [Unknown]
  - Haematuria [Not Recovered/Not Resolved]

NARRATIVE: CASE EVENT DATE: 20150115
